FAERS Safety Report 13483953 (Version 1)
Quarter: 2017Q2

REPORT INFORMATION
  Report Type: Spontaneous
  Country: US (occurrence: US)
  Receive Date: 20170425
  Receipt Date: 20170425
  Transmission Date: 20170830
  Serious: No
  Sender: FDA-Public Use
  Company Number: None

PATIENT
  Age: 23 Year
  Sex: Male
  Weight: 78.75 kg

DRUGS (3)
  1. IRON [Concomitant]
     Active Substance: IRON
  2. TRAMADOL. [Suspect]
     Active Substance: TRAMADOL
     Indication: PROCEDURAL PAIN
     Dosage: ?          QUANTITY:1 TABLET(S);?
     Route: 048
     Dates: start: 20170414, end: 20170419
  3. TRAMADOL. [Suspect]
     Active Substance: TRAMADOL
     Indication: TENOPLASTY
     Dosage: ?          QUANTITY:1 TABLET(S);?
     Route: 048
     Dates: start: 20170414, end: 20170419

REACTIONS (3)
  - Loss of consciousness [None]
  - Emotional distress [None]
  - Amnesia [None]

NARRATIVE: CASE EVENT DATE: 20170415
